FAERS Safety Report 7876089-4 (Version None)
Quarter: 2011Q4

REPORT INFORMATION
  Report Type: 
  Country: None (occurrence: None)
  Receive Date: 20111031
  Receipt Date: 20111004
  Transmission Date: 20120403
  Serious: Yes (Hospitalization)
  Sender: FDA-Public Use
  Company Number: US-ROCHE-793038

PATIENT
  Sex: Female
  Weight: 86 kg

DRUGS (12)
  1. AVASTIN [Suspect]
     Indication: BREAST CANCER
     Dosage: OVER 30-90 MIN ON DAY 1 OF WEEKS 1, 3, 5, 7, 9, 11, 13, 15 AND 17 (CYCLE: 19 WEEKS); LAST DATE OF AD
     Route: 065
  2. PACLITAXEL [Suspect]
     Indication: BREAST CANCER
     Dosage: OVER 1 HOUR ON DAY 1 OF WEEKS 1-12 (CYCLE: 19 WEEKS)
     Route: 042
  3. CARBOPLATIN [Suspect]
     Indication: BREAST CANCER
     Dosage: AUC 6 OVER 30 MIN ON DAY 1 OF WEEKS 1, 4, 7 AND 10 .CYCLE: 19 WEEKS, TOTAL DOSE:3600 MG
     Route: 042
  4. CYCLOPHOSPHAMIDE [Suspect]
     Indication: BREAST CANCER
     Dosage: OVER 5-30 MIN ON DAY 1 OF WEEKS 13, 15, 17 AND 19. CYCLE: 19 WEEKS.TOTAL DOSE:2334 MG
     Route: 042
  5. HYDROMORPHONE HYDROCHLORIDE [Suspect]
     Indication: PRODUCT USED FOR UNKNOWN INDICATION
     Route: 065
  6. OMEPRAZOLE [Suspect]
     Indication: PRODUCT USED FOR UNKNOWN INDICATION
     Route: 065
  7. LORAZEPAM [Suspect]
     Indication: PRODUCT USED FOR UNKNOWN INDICATION
     Route: 065
  8. MOUTHWASH NOS [Suspect]
     Indication: PRODUCT USED FOR UNKNOWN INDICATION
     Route: 065
  9. NYSTATIN [Suspect]
     Indication: PRODUCT USED FOR UNKNOWN INDICATION
     Route: 065
  10. DOCUSATE SODIUM [Suspect]
     Indication: PRODUCT USED FOR UNKNOWN INDICATION
     Route: 065
  11. PROCHLORPERAZINE [Suspect]
     Indication: PRODUCT USED FOR UNKNOWN INDICATION
     Route: 065
  12. DOXORUBICIN HCL [Suspect]
     Indication: BREAST CANCER
     Dosage: OVER 5-10 MINS ON DAY 1 OF WEEKS 13, 15, 17 AND 19. CYCLE: 19 WEEKS.TOTAL DOSE: 234 MG
     Route: 042

REACTIONS (5)
  - HYPOMAGNESAEMIA [None]
  - OESOPHAGITIS [None]
  - FEBRILE NEUTROPENIA [None]
  - STOMATITIS [None]
  - ANAEMIA [None]
